FAERS Safety Report 7423208-X (Version None)
Quarter: 2011Q2

REPORT INFORMATION
  Report Type: 
  Country: None (occurrence: None)
  Receive Date: 20110413
  Receipt Date: 20110413
  Transmission Date: 20111010
  Serious: Yes (Life-Threatening, Hospitalization)
  Sender: FDA-Public Use
  Company Number: None

PATIENT
  Age: 52 Year
  Sex: Male
  Weight: 113 kg

DRUGS (2)
  1. PENICILLIN [Suspect]
     Indication: TOOTH INFECTION
     Dosage: 500 MG QID PO
     Route: 048
     Dates: start: 20110304, end: 20110304
  2. PENICILLIN [Suspect]
     Indication: PAIN
     Dosage: 500 MG QID PO
     Route: 048
     Dates: start: 20110304, end: 20110304

REACTIONS (3)
  - COUGH [None]
  - ANGIOEDEMA [None]
  - WHEEZING [None]
